FAERS Safety Report 6963692-9 (Version None)
Quarter: 2010Q3

REPORT INFORMATION
  Report Type: 
  Country: None (occurrence: None)
  Receive Date: 20100830
  Receipt Date: 20100823
  Transmission Date: 20110219
  Serious: Yes (Other)
  Sender: FDA-Public Use
  Company Number: 676414

PATIENT
  Sex: Female

DRUGS (2)
  1. CARBOPLATIN [Suspect]
     Indication: BLADDER CANCER
  2. CARBOPLATIN [Suspect]
     Indication: METASTASIS

REACTIONS (6)
  - BLADDER CANCER [None]
  - HYPOPHOSPHATAEMIA [None]
  - INTESTINAL OBSTRUCTION [None]
  - MALIGNANT NEOPLASM PROGRESSION [None]
  - NEUTROPENIC SEPSIS [None]
  - RENAL TUBULAR ACIDOSIS [None]
